FAERS Safety Report 23176805 (Version 1)
Quarter: 2023Q4

REPORT INFORMATION
  Report Type: Spontaneous
  Country: US (occurrence: None)
  Receive Date: 20231110
  Receipt Date: 20231110
  Transmission Date: 20240109
  Serious: Yes (Other)
  Sender: FDA-Public Use
  Company Number: None

PATIENT
  Sex: Male

DRUGS (3)
  1. HUMIRA [Suspect]
     Active Substance: ADALIMUMAB
     Dosage: 40 MG/0.8ML SUBCUTANEOUS??INJECT 40MG ALTERNATING 80MG EVERY WEEK ?
     Route: 058
     Dates: start: 20210727
  2. MULTIVITAMIN TAB [Concomitant]
  3. PROBIOTIC CAP FORMULA [Concomitant]

REACTIONS (2)
  - Diarrhoea [None]
  - Neoplasm malignant [None]
